FAERS Safety Report 7593773-0 (Version None)
Quarter: 2011Q3

REPORT INFORMATION
  Report Type: 
  Country: None (occurrence: None)
  Receive Date: 20110706
  Receipt Date: 20110623
  Transmission Date: 20111222
  Serious: Yes (Other)
  Sender: FDA-Public Use
  Company Number: PHHY2011IT57084

PATIENT
  Sex: Female

DRUGS (6)
  1. VOLTAREN [Suspect]
     Indication: BACK PAIN
     Dosage: UNK UKN, UNK
     Route: 030
     Dates: start: 20110609
  2. MUSCORIL [Suspect]
     Indication: BACK PAIN
     Dosage: UNK UKN, UNK
     Route: 030
     Dates: start: 20110609
  3. FOSAVANCE [Concomitant]
     Dosage: UNK UKN, UNK
     Route: 048
  4. DIBASE [Concomitant]
     Dosage: UNK UKN, UNK
     Route: 030
  5. VERTISERC [Concomitant]
     Dosage: UNK UKN, UNK
     Route: 048
  6. ELOPRAM [Concomitant]
     Dosage: 20 MG, UNK
     Route: 048

REACTIONS (4)
  - PRESYNCOPE [None]
  - BLOOD PRESSURE INCREASED [None]
  - VERTIGO [None]
  - BLOOD CHOLESTEROL INCREASED [None]
